FAERS Safety Report 4712759-4 (Version None)
Quarter: 2005Q3

REPORT INFORMATION
  Report Type: 
  Country: None (occurrence: None)
  Receive Date: 20050701
  Receipt Date: 20041220
  Transmission Date: 20060218
  Serious: Yes (Other)
  Sender: FDA-Public Use
  Company Number: 2004116913

PATIENT
  Sex: Female
  Weight: 99.7913 kg

DRUGS (4)
  1. ZOLOFT [Suspect]
     Indication: DEPRESSION
     Dosage: 25 MG (25 MG, 1 IN 1 D), ORAL
     Route: 048
     Dates: start: 20041029, end: 20041124
  2. ZOLOFT [Suspect]
     Indication: FATIGUE
     Dosage: 25 MG (25 MG, 1 IN 1 D), ORAL
     Route: 048
     Dates: start: 20041029, end: 20041124
  3. CLONIDINE [Suspect]
     Indication: AGITATION
     Dosage: UNK, ORAL
     Route: 048
     Dates: start: 20041128, end: 20041128
  4. METHADONE HCL [Concomitant]

REACTIONS (28)
  - ABDOMINAL PAIN UPPER [None]
  - AGITATION [None]
  - ALOPECIA [None]
  - BLOOD PRESSURE ABNORMAL [None]
  - CHEST PAIN [None]
  - CHROMATURIA [None]
  - DRUG TOXICITY [None]
  - DYSPNOEA [None]
  - ELECTROCARDIOGRAM ABNORMAL [None]
  - EYE SWELLING [None]
  - GINGIVAL DISCOLOURATION [None]
  - HEADACHE [None]
  - HEART RATE INCREASED [None]
  - HOT FLUSH [None]
  - INSOMNIA [None]
  - LOSS OF CONSCIOUSNESS [None]
  - MIGRAINE [None]
  - MYALGIA [None]
  - NAUSEA [None]
  - NOCTURIA [None]
  - PARAESTHESIA [None]
  - RASH [None]
  - SEROTONIN SYNDROME [None]
  - SYNCOPE [None]
  - TINNITUS [None]
  - TREMOR [None]
  - VOMITING [None]
  - WHITE BLOOD CELL COUNT INCREASED [None]
